FAERS Safety Report 25326910 (Version 3)
Quarter: 2025Q2

REPORT INFORMATION
  Report Type: Spontaneous
  Country: US (occurrence: US)
  Receive Date: 20250517
  Receipt Date: 20250522
  Transmission Date: 20250717
  Serious: Yes (Other)
  Sender: AMNEAL
  Company Number: US-AMNEAL PHARMACEUTICALS-2025-AMRX-01470

PATIENT
  Age: 65 Year
  Sex: Female
  Weight: 63.492 kg

DRUGS (7)
  1. CREXONT [Suspect]
     Active Substance: CARBIDOPA\LEVODOPA
     Indication: Parkinson^s disease
     Dosage: 08 (70/280 MG) CAPSULES, DAILY
     Route: 048
     Dates: start: 202411
  2. GABAPENTIN [Concomitant]
     Active Substance: GABAPENTIN
     Indication: Neuralgia
     Route: 065
  3. MIDODRINE [Concomitant]
     Active Substance: MIDODRINE
     Indication: Hypotension
     Route: 065
  4. COPPER [Concomitant]
     Active Substance: COPPER
     Indication: Vulvovaginal dryness
     Route: 065
  5. ESTRADIOL [Concomitant]
     Active Substance: ESTRADIOL
     Indication: Vulvovaginal dryness
     Route: 065
  6. CREON [Concomitant]
     Active Substance: PANCRELIPASE AMYLASE\PANCRELIPASE LIPASE\PANCRELIPASE PROTEASE
     Indication: Pancreatic failure
     Route: 065
  7. LEVOTHYROXINE [Concomitant]
     Active Substance: LEVOTHYROXINE
     Indication: Thyroid disorder
     Route: 065

REACTIONS (5)
  - Lower limb fracture [Unknown]
  - Speech disorder [Recovering/Resolving]
  - Head injury [Unknown]
  - Face injury [Unknown]
  - Fall [Unknown]

NARRATIVE: CASE EVENT DATE: 20241110
